FAERS Safety Report 4370893-5 (Version None)
Quarter: 2004Q2

REPORT INFORMATION
  Report Type: 
  Country: None (occurrence: None)
  Receive Date: 20040604
  Receipt Date: 20040514
  Transmission Date: 20050107
  Serious: Yes (Other)
  Sender: FDA-Public Use
  Company Number: PHBS2004IE06468

PATIENT
  Age: 53 Year
  Sex: Female

DRUGS (1)
  1. GLEEVEC [Suspect]
     Indication: GASTROINTESTINAL STROMAL TUMOUR
     Dosage: 1600 MG, ONCE/SINGLE
     Route: 048

REACTIONS (4)
  - ACCIDENTAL OVERDOSE [None]
  - EXOPHTHALMOS [None]
  - RASH [None]
  - VOMITING [None]
